FAERS Safety Report 5977770-4 (Version None)
Quarter: 2008Q4

REPORT INFORMATION
  Report Type: 
  Country: None (occurrence: None)
  Receive Date: 20081203
  Receipt Date: 20081125
  Transmission Date: 20090506
  Serious: Yes (Hospitalization)
  Sender: FDA-Public Use
  Company Number: IN-ELI_LILLY_AND_COMPANY-IN200811006160

PATIENT
  Age: 78 Year
  Sex: Male

DRUGS (1)
  1. HUMINSULIN 30% REGULAR, 70% NPH [Suspect]
     Indication: DIABETES MELLITUS
     Dosage: 26 IU, DAILY (1/D), 10 UNITS IN MORNING AND 16 UNITS IN EVENING
     Route: 058
     Dates: start: 20080922

REACTIONS (2)
  - CARDIAC PACEMAKER INSERTION [None]
  - DIABETES MELLITUS INADEQUATE CONTROL [None]
